FAERS Safety Report 19040794 (Version 1)
Quarter: 2021Q1

REPORT INFORMATION
  Report Type: Spontaneous
  Country: IT (occurrence: IT)
  Receive Date: 20210322
  Receipt Date: 20210322
  Transmission Date: 20210420
  Serious: Yes (Other)
  Sender: FDA-Public Use
  Company Number: IT-ABBVIE-21K-083-3814403-00

PATIENT
  Age: 45 Year
  Sex: Male

DRUGS (17)
  1. RITONAVIR. [Suspect]
     Active Substance: RITONAVIR
     Route: 065
  2. RITONAVIR. [Suspect]
     Active Substance: RITONAVIR
     Route: 065
  3. ABACAVIR SULPHATE [Suspect]
     Active Substance: ABACAVIR
     Dosage: UNK
     Route: 065
  4. LAMIVUDINE. [Suspect]
     Active Substance: LAMIVUDINE
     Dosage: UNK
     Route: 065
  5. FOSAMPRENAVIR [Suspect]
     Active Substance: FOSAMPRENAVIR
     Dosage: UNK
     Route: 065
  6. ZIDOVUDINE. [Concomitant]
     Active Substance: ZIDOVUDINE
     Indication: HIV INFECTION
     Dosage: UNK
  7. LAMIVUDINE. [Suspect]
     Active Substance: LAMIVUDINE
     Indication: HIV INFECTION
     Dosage: UNK
     Route: 065
  8. LAMIVUDINE. [Suspect]
     Active Substance: LAMIVUDINE
     Dosage: UNK
     Route: 065
  9. FOSAMPRENAVIR [Suspect]
     Active Substance: FOSAMPRENAVIR
     Indication: HIV INFECTION
     Dosage: UNK
     Route: 065
  10. FOSAMPRENAVIR [Suspect]
     Active Substance: FOSAMPRENAVIR
     Dosage: UNK
     Route: 065
  11. FOSAMPRENAVIR [Suspect]
     Active Substance: FOSAMPRENAVIR
     Dosage: UNK
     Route: 065
  12. ABACAVIR SULPHATE [Suspect]
     Active Substance: ABACAVIR
     Dosage: UNK
     Route: 065
  13. ABACAVIR SULPHATE [Suspect]
     Active Substance: ABACAVIR
     Dosage: UNK
     Route: 065
  14. RITONAVIR. [Suspect]
     Active Substance: RITONAVIR
     Indication: HIV INFECTION
     Route: 065
  15. RITONAVIR. [Suspect]
     Active Substance: RITONAVIR
     Route: 065
  16. ABACAVIR SULPHATE [Suspect]
     Active Substance: ABACAVIR
     Indication: HIV INFECTION
     Dosage: UNK
     Route: 065
  17. LAMIVUDINE. [Suspect]
     Active Substance: LAMIVUDINE
     Dosage: UNK
     Route: 065

REACTIONS (2)
  - CSF HIV escape syndrome [Recovered/Resolved]
  - Virologic failure [Recovered/Resolved]
